FAERS Safety Report 19250229 (Version 3)
Quarter: 2021Q3

REPORT INFORMATION
  Report Type: Spontaneous
  Country: BE (occurrence: BE)
  Receive Date: 20210512
  Receipt Date: 20210816
  Transmission Date: 20211014
  Serious: Yes (Other)
  Sender: FDA-Public Use
  Company Number: BE-BRISTOL-MYERS SQUIBB COMPANY-BMS-2021-044175

PATIENT
  Sex: Male

DRUGS (3)
  1. OPDIVO [Suspect]
     Active Substance: NIVOLUMAB
     Dosage: 240 MILLIGRAM, Q2WK, FIX
     Route: 042
  2. YERVOY [Suspect]
     Active Substance: IPILIMUMAB
     Indication: METASTATIC MALIGNANT MELANOMA
     Dosage: 3 MILLIGRAM/KILOGRAM/ 3 WEEKS  INTO 4
     Route: 042
     Dates: start: 20170717, end: 20171013
  3. OPDIVO [Suspect]
     Active Substance: NIVOLUMAB
     Indication: METASTATIC MALIGNANT MELANOMA
     Dosage: 1 MILLIGRAM/KILOGRAM, Q3WK
     Route: 042
     Dates: start: 20170717, end: 20190613

REACTIONS (3)
  - Cardiac disorder [Unknown]
  - Cardiomyopathy [Recovered/Resolved with Sequelae]
  - Myocarditis [Unknown]

NARRATIVE: CASE EVENT DATE: 201907
